FAERS Safety Report 7616064 (Version 10)
Quarter: 2012Q4

REPORT INFORMATION
  Report Type: Report from Study
  Country: FR (occurrence: FR)
  Receive Date: 20101004
  Receipt Date: 20121109
  Transmission Date: 20130627
  Serious: Yes (Hospitalization)
  Sender: FDA-Public Use
  Company Number: FR-ROCHE-729469

PATIENT
  Age: 73 Year
  Sex: Female
  Weight: 52 kg

DRUGS (43)
  1. MYCOPHENOLATE MOFETIL [Suspect]
     Indication: PROPHYLAXIS AGAINST TRANSPLANT REJECTION
     Route: 048
  2. CERTICAN [Suspect]
     Indication: PROPHYLAXIS AGAINST TRANSPLANT REJECTION
     Dosage: ROUTE REPORTED AS PER OS. LAST DOSE PRIOR TO SAE 23 SEP 2010.
     Route: 048
  3. CORTANCYL [Suspect]
     Indication: PROPHYLAXIS AGAINST TRANSPLANT REJECTION
     Dosage: LAST DOSE PRIOR TO SAE: 8 SEP 2010
     Route: 048
  4. CORTANCYL [Suspect]
     Route: 048
  5. PROGRAF [Suspect]
     Indication: PROPHYLAXIS AGAINST TRANSPLANT REJECTION
     Route: 048
  6. ROVALCYTE [Concomitant]
     Dosage: TEMPORARILY DISCONTINUED FROM 28 JUN TO 05 JULY 2010
     Route: 048
     Dates: start: 20100521, end: 20100628
  7. ROVALCYTE [Concomitant]
     Route: 048
  8. AMLOR [Concomitant]
     Dosage: FREQUENCY REPORTED AS QD.
     Route: 048
  9. AMLOR [Concomitant]
     Route: 048
  10. ELISOR [Concomitant]
     Dosage: REPORTED AS QD.
     Route: 048
  11. PHOSPHONEUROS [Concomitant]
     Route: 048
  12. DIFFU K [Concomitant]
     Dosage: TDD: 6 DOSES
     Route: 048
  13. DIFFU K [Concomitant]
     Route: 048
     Dates: start: 20100628, end: 20100930
  14. DIFFU K [Concomitant]
     Route: 048
     Dates: start: 20110503, end: 20110517
  15. MAG 2 [Concomitant]
     Dosage: TDD: 2 DOSES
     Route: 065
  16. INIPOMP [Concomitant]
     Dosage: REPORTED AS QD.
     Route: 048
  17. INIPOMP [Concomitant]
     Route: 048
  18. BICARBONATE DE SODIUM [Concomitant]
     Route: 048
  19. BICARBONATE DE SODIUM [Concomitant]
     Route: 048
  20. INSULATARD [Concomitant]
     Dosage: TDD: 20+9 IU
     Route: 065
     Dates: start: 20100703, end: 20100806
  21. NOVORAPID [Concomitant]
     Dosage: TDD: 8+8+8 IU
     Route: 058
  22. NOVORAPID [Concomitant]
     Route: 058
     Dates: start: 20100721, end: 20101001
  23. NOVORAPID [Concomitant]
     Route: 058
  24. TAZOCILLINE [Concomitant]
     Route: 065
     Dates: start: 20100628, end: 20100719
  25. CIPROFLOXACIN [Concomitant]
     Route: 065
     Dates: start: 20100628, end: 20100718
  26. XYZALL [Concomitant]
     Route: 048
     Dates: start: 20100915, end: 20100929
  27. LANTUS [Concomitant]
     Dosage: REPORTED AS QD.
     Route: 058
     Dates: start: 20100907, end: 20101001
  28. EPREX [Concomitant]
     Route: 058
  29. LEXOMIL [Concomitant]
     Route: 048
  30. LEXOMIL [Concomitant]
     Route: 048
  31. NOVOMIX [Concomitant]
     Route: 058
     Dates: start: 20100811, end: 20100906
  32. MACROGOL [Concomitant]
     Dosage: DRUG REPORTED AS PORLAX QD AS NEEDED.
     Route: 048
  33. MACROGOL [Concomitant]
     Route: 048
  34. LASILIX [Concomitant]
     Route: 065
  35. KARDEGIC [Concomitant]
     Route: 065
  36. DUPHALAC [Concomitant]
     Route: 065
  37. DEBRIDAT [Concomitant]
     Route: 065
  38. INSULATARD [Concomitant]
     Route: 058
  39. NOVORAPID [Concomitant]
     Route: 058
  40. TAZOCILLINE [Concomitant]
     Route: 065
     Dates: start: 20110512, end: 20110514
  41. AMIKLIN [Concomitant]
     Route: 065
     Dates: start: 20110512, end: 20110513
  42. OFLOCET [Concomitant]
     Route: 065
  43. MIRCERA [Concomitant]
     Route: 058

REACTIONS (4)
  - Transplant rejection [Recovering/Resolving]
  - Escherichia sepsis [Recovered/Resolved]
  - Urosepsis [Recovered/Resolved]
  - Escherichia sepsis [Recovered/Resolved]
